FAERS Safety Report 6357311-2 (Version None)
Quarter: 2009Q3

REPORT INFORMATION
  Report Type: 
  Country: None (occurrence: None)
  Receive Date: 20090916
  Receipt Date: 20090911
  Transmission Date: 20100115
  Serious: Yes (Death)
  Sender: FDA-Public Use
  Company Number: PHHY2009BR39199

PATIENT
  Sex: Male

DRUGS (2)
  1. EXELON [Suspect]
     Dosage: UNK
  2. STALEVO 100 [Suspect]
     Dosage: 100/25/200 MG, UNK

REACTIONS (1)
  - DEATH [None]
